FAERS Safety Report 5145698-8 (Version None)
Quarter: 2006Q4

REPORT INFORMATION
  Report Type: 
  Country: None (occurrence: None)
  Receive Date: 20061102
  Receipt Date: 20061024
  Transmission Date: 20070319
  Serious: Yes (Hospitalization)
  Sender: FDA-Public Use
  Company Number: 2006-05558

PATIENT
  Age: 62 Year
  Sex: Female

DRUGS (1)
  1. TRIAMCINOLONE ACETONIDE [Suspect]
     Dosage: 4 MG, INTRAOCULAR
     Route: 031

REACTIONS (1)
  - NECROTISING RETINITIS [None]
